FAERS Safety Report 8607022 (Version 3)
Quarter: 2013Q4

REPORT INFORMATION
  Report Type: Spontaneous
  Country: US (occurrence: US)
  Receive Date: 20120611
  Receipt Date: 20131129
  Transmission Date: 20140711
  Serious: Yes (Disabling, Other)
  Sender: FDA-Public Use
  Company Number: US-ASTRAZENECA-2012SE35375

PATIENT
  Age: 48 Year
  Sex: Female

DRUGS (23)
  1. NEXIUM [Suspect]
     Indication: GASTROOESOPHAGEAL REFLUX DISEASE
     Route: 048
     Dates: start: 2000
  2. NEXIUM [Suspect]
     Indication: GASTROOESOPHAGEAL REFLUX DISEASE
     Route: 048
     Dates: start: 20021002
  3. CELEBREX [Concomitant]
     Dates: start: 20021002
  4. PROTONIX [Concomitant]
  5. TUMS [Concomitant]
  6. TORSEMIDE [Concomitant]
     Dates: start: 20020905
  7. METHOCARBAMOL [Concomitant]
     Dates: start: 20021002
  8. PHENOBARBITAL [Concomitant]
     Dates: start: 20021106
  9. PROPO-N\APAP [Concomitant]
     Dosage: 100-650 MG
     Dates: start: 20021126
  10. METHYLPREDNISOLONE [Concomitant]
     Dates: start: 20021121
  11. CIPRO [Concomitant]
     Dates: start: 20021203
  12. SYNTHROID [Concomitant]
     Dates: start: 20021203
  13. DILANTIN [Concomitant]
     Dates: start: 20030106
  14. LEXAPRO [Concomitant]
     Dates: start: 20030108
  15. PLETAL [Concomitant]
     Dates: start: 20030217
  16. CEPHALEXIN [Concomitant]
     Dates: start: 20031107
  17. DIFLUCAN [Concomitant]
     Dates: start: 20040722
  18. PREVACID [Concomitant]
     Dates: start: 20050202
  19. NAPROXEN SOD [Concomitant]
     Dates: start: 20050701
  20. HCTZ [Concomitant]
     Dates: start: 20051108
  21. SUCRALFATE [Concomitant]
     Dates: start: 20060306
  22. LYRICA [Concomitant]
     Dates: start: 20060914
  23. WARFARIN [Concomitant]
     Dates: start: 20060919

REACTIONS (14)
  - Cervical vertebral fracture [Unknown]
  - Spinal fracture [Unknown]
  - Convulsion [Unknown]
  - Dysstasia [Unknown]
  - Cerebrovascular accident [Unknown]
  - Osteoporosis [Unknown]
  - Multiple fractures [Unknown]
  - Intervertebral disc disorder [Unknown]
  - Rheumatoid arthritis [Unknown]
  - Arthritis [Unknown]
  - Cataract [Unknown]
  - Hypothyroidism [Unknown]
  - Vitamin D deficiency [Unknown]
  - Intervertebral disc degeneration [Unknown]
